FAERS Safety Report 6303864-X (Version None)
Quarter: 2009Q3

REPORT INFORMATION
  Report Type: 
  Country: None (occurrence: None)
  Receive Date: 20090805
  Receipt Date: 20090803
  Transmission Date: 20100115
  Serious: Yes (Death, Hospitalization)
  Sender: FDA-Public Use
  Company Number: 2009SP014477

PATIENT
  Age: 54 Year
  Sex: Male
  Weight: 66 kg

DRUGS (14)
  1. TEMOZOLOMIDE [Suspect]
     Indication: GLIOBLASTOMA MULTIFORME
     Dosage: 200 MG/M2; PO
     Route: 048
     Dates: start: 20090408, end: 20090412
  2. BEVACIZUMAB [Suspect]
     Indication: GLIOBLASTOMA MULTIFORME
     Dosage: 10 MG/KG;QOW; PO
     Route: 048
     Dates: start: 20090408, end: 20090412
  3. IRINOTECAN HCL [Suspect]
     Indication: GLIOBLASTOMA MULTIFORME
     Dosage: 125 MG/M2; QOW; PO
     Route: 048
     Dates: start: 20090408, end: 20090422
  4. KEPPRA [Concomitant]
  5. METOPROLOL [Concomitant]
  6. DEXAMETHASONE [Concomitant]
  7. LIPITOR [Concomitant]
  8. REGLAN [Concomitant]
  9. ATIVAN [Concomitant]
  10. AMBIEN [Concomitant]
  11. PREVACID [Concomitant]
  12. COLACE [Concomitant]
  13. SENNA PLUS [Concomitant]
  14. FAMVIR [Concomitant]

REACTIONS (3)
  - BLOOD GLUCOSE INCREASED [None]
  - PNEUMOCYSTIS JIROVECI PNEUMONIA [None]
  - RESPIRATORY DISTRESS [None]
